FAERS Safety Report 9729061 (Version 1)
Quarter: 2013Q4

REPORT INFORMATION
  Report Type: Spontaneous
  Country: US (occurrence: US)
  Receive Date: 20131204
  Receipt Date: 20131204
  Transmission Date: 20140711
  Serious: Yes (Other)
  Sender: FDA-Public Use
  Company Number: PHHY2013US137118

PATIENT
  Age: 60 Year
  Sex: Male

DRUGS (1)
  1. DOXORUBICIN [Suspect]
     Dosage: 1 OT, LOADED WITH 75 MG OF DOXORUBICIN

REACTIONS (5)
  - Gastric disorder [Recovering/Resolving]
  - Haematemesis [Recovering/Resolving]
  - Gastric ulcer [Recovering/Resolving]
  - Gastrointestinal haemorrhage [Recovering/Resolving]
  - Gastritis erosive [Recovering/Resolving]
